FAERS Safety Report 4481688-6 (Version None)
Quarter: 2004Q4

REPORT INFORMATION
  Report Type: 
  Country: None (occurrence: None)
  Receive Date: 20041021
  Receipt Date: 20041014
  Transmission Date: 20050328
  Serious: Yes (Hospitalization, Disabling, Other)
  Sender: FDA-Public Use
  Company Number: DE-MERCK-0410DEU00468

PATIENT
  Sex: Female

DRUGS (2)
  1. VIOXX [Suspect]
     Route: 048
     Dates: start: 20020715, end: 20020813
  2. VIOXX [Suspect]
     Route: 048
     Dates: start: 20021201, end: 20030501

REACTIONS (2)
  - PULMONARY EMBOLISM [None]
  - THROMBOSIS [None]
